FAERS Safety Report 7954007-8 (Version None)
Quarter: 2011Q4

REPORT INFORMATION
  Report Type: 
  Country: None (occurrence: None)
  Receive Date: 20111202
  Receipt Date: 20111202
  Transmission Date: 20120403
  Serious: No
  Sender: FDA-Public Use
  Company Number: None

PATIENT
  Age: 69 Month
  Sex: Female
  Weight: 79.378 kg

DRUGS (4)
  1. BUPROPION HCL [Suspect]
     Indication: MAJOR DEPRESSION
     Dosage: ONE TABLET
     Route: 048
     Dates: start: 20111121, end: 20111201
  2. TRIAMTERENE AND HYDROCHLOROTHIAZIDE [Concomitant]
  3. TRAMADOL HCL [Concomitant]
  4. LEVOTHYROXINE SODIUM [Concomitant]

REACTIONS (1)
  - HALLUCINATION, AUDITORY [None]
